FAERS Safety Report 4699471-5 (Version None)
Quarter: 2005Q2

REPORT INFORMATION
  Report Type: 
  Country: None (occurrence: None)
  Receive Date: 20050624
  Receipt Date: 20040922
  Transmission Date: 20051028
  Serious: Yes (Hospitalization)
  Sender: FDA-Public Use
  Company Number: PHBS2004NO12579

PATIENT
  Age: 4 Year
  Sex: Male

DRUGS (3)
  1. TRILEPTAL [Suspect]
     Dosage: 30 MG, BID
     Route: 048
     Dates: start: 20040828, end: 20040828
  2. TRIMONIL - SLOW RELEASE [Suspect]
     Indication: EPILEPSY
     Dosage: 75 MG, QD
     Route: 065
     Dates: start: 20040607
  3. TRIMONIL - SLOW RELEASE [Suspect]
     Dosage: 75 MG, BID
     Route: 065
     Dates: end: 20040619

REACTIONS (4)
  - ERYTHEMA [None]
  - PHOTOSENSITIVITY REACTION [None]
  - PRURITUS [None]
  - PYREXIA [None]
